FAERS Safety Report 5026138-6 (Version None)
Quarter: 2006Q2

REPORT INFORMATION
  Report Type: 
  Country: None (occurrence: None)
  Receive Date: 20060612
  Receipt Date: 20060612
  Transmission Date: 20061013
  Serious: No
  Sender: FDA-Public Use
  Company Number: None

PATIENT
  Age: 41 Year
  Sex: Female
  Weight: 77.1115 kg

DRUGS (2)
  1. PAXIL [Suspect]
     Indication: SOCIAL PHOBIA
     Dates: start: 19990327, end: 20020311
  2. EFFEXOR [Suspect]

REACTIONS (10)
  - DISTURBANCE IN ATTENTION [None]
  - FREQUENT BOWEL MOVEMENTS [None]
  - LACTOSE INTOLERANCE [None]
  - NIGHT SWEATS [None]
  - PARAESTHESIA [None]
  - SELF ESTEEM DECREASED [None]
  - SOCIAL PHOBIA [None]
  - SUICIDAL IDEATION [None]
  - TREMOR [None]
  - WEIGHT INCREASED [None]
